FAERS Safety Report 8111099-3 (Version None)
Quarter: 2012Q1

REPORT INFORMATION
  Report Type: 
  Country: None (occurrence: None)
  Receive Date: 20120203
  Receipt Date: 20110414
  Transmission Date: 20120608
  Serious: No
  Sender: FDA-Public Use
  Company Number: US-GLAXOSMITHKLINE-A0923009A

PATIENT
  Age: 44 Year
  Sex: Male

DRUGS (2)
  1. HEARTBURN MEDICATION [Concomitant]
  2. LAMICTAL [Suspect]
     Indication: DETOXIFICATION
     Dosage: 600MG PER DAY
     Route: 048

REACTIONS (8)
  - DISTURBANCE IN ATTENTION [None]
  - PANIC REACTION [None]
  - DRUG INEFFECTIVE [None]
  - PRODUCT QUALITY ISSUE [None]
  - MENTAL DISORDER [None]
  - INSOMNIA [None]
  - FEELING ABNORMAL [None]
  - IRRITABILITY [None]
